FAERS Safety Report 18035154 (Version 1)
Quarter: 2020Q3

REPORT INFORMATION
  Report Type: Spontaneous
  Country: US (occurrence: US)
  Receive Date: 20200716
  Receipt Date: 20200716
  Transmission Date: 20201103
  Serious: Yes (Other)
  Sender: FDA-Public Use
  Company Number: None

PATIENT
  Age: 54 Year
  Sex: Male
  Weight: 110.2 kg

DRUGS (1)
  1. CLEVIDIPINE [Suspect]
     Active Substance: CLEVIDIPINE
     Indication: HYPERTENSION
     Route: 042
     Dates: start: 20200404, end: 20200406

REACTIONS (1)
  - Hypoxia [None]

NARRATIVE: CASE EVENT DATE: 20200406
